FAERS Safety Report 7656522-3 (Version None)
Quarter: 2011Q3

REPORT INFORMATION
  Report Type: 
  Country: None (occurrence: None)
  Receive Date: 20110804
  Receipt Date: 20101014
  Transmission Date: 20111222
  Serious: No
  Sender: FDA-Public Use
  Company Number: US-BAUSCH-2010BL005800

PATIENT
  Age: 65 Year
  Sex: Female

DRUGS (2)
  1. OPCON-A [Suspect]
     Indication: OCULAR HYPERAEMIA
     Route: 047
     Dates: start: 20101013, end: 20101013
  2. THERA TEARS [Concomitant]
     Indication: DRY EYE
     Route: 047

REACTIONS (1)
  - MYDRIASIS [None]
